FAERS Safety Report 4977148-6 (Version None)
Quarter: 2006Q2

REPORT INFORMATION
  Report Type: 
  Country: None (occurrence: None)
  Receive Date: 20060413
  Receipt Date: 20060327
  Transmission Date: 20061013
  Serious: Yes (Death)
  Sender: FDA-Public Use
  Company Number: DSA_81494_2005

PATIENT
  Age: 44 Year
  Sex: Male
  Weight: 113.3993 kg

DRUGS (2)
  1. XYREM [Suspect]
     Indication: SLEEP DISORDER
     Dosage: G TWICE NIGHTLY PO
     Route: 048
     Dates: start: 20050921, end: 20050901
  2. XANAX [Concomitant]

REACTIONS (3)
  - DRUG INTERACTION [None]
  - INJURY ASPHYXIATION [None]
  - RESPIRATORY ARREST [None]
